FAERS Safety Report 15465171 (Version 1)
Quarter: 2018Q4

REPORT INFORMATION
  Report Type: Spontaneous
  Country: IT (occurrence: IT)
  Receive Date: 20181004
  Receipt Date: 20181004
  Transmission Date: 20190204
  Serious: No
  Sender: FDA-Public Use
  Company Number: IT-JAZZ-2018-IT-008093

PATIENT
  Age: 38 Year
  Sex: Male
  Weight: 190 kg

DRUGS (1)
  1. ASPARAGINASE [Suspect]
     Active Substance: ASPARAGINASE
     Indication: NON-HODGKIN^S LYMPHOMA
     Dosage: 1875 IU, UNK
     Route: 042
     Dates: start: 20180512, end: 20180512

REACTIONS (1)
  - Rash [Recovered/Resolved]

NARRATIVE: CASE EVENT DATE: 20180512
